FAERS Safety Report 11144591 (Version 1)
Quarter: 2015Q2

REPORT INFORMATION
  Report Type: Spontaneous
  Country: US (occurrence: US)
  Receive Date: 20150526
  Receipt Date: 20150526
  Transmission Date: 20150821
  Serious: Yes (Other)
  Sender: FDA-Public Use
  Company Number: US-BAYER-2015-235946

PATIENT
  Age: 62 Year
  Sex: Female
  Weight: 113 kg

DRUGS (2)
  1. ONE A DAY VITACRAVES PLUS IMMUNITY SUPPORT GUMMIES [Suspect]
     Active Substance: MINERALS\VITAMINS
     Dosage: 2 DF, QD
     Route: 048
  2. ALEVE [Suspect]
     Active Substance: NAPROXEN SODIUM
     Indication: DYSMENORRHOEA
     Dosage: UNK
     Route: 048
     Dates: start: 2005, end: 2005

REACTIONS (6)
  - Product use issue [None]
  - Therapeutic response unexpected [None]
  - Drug ineffective [None]
  - Neoplasm malignant [Unknown]
  - Colon cancer [Unknown]
  - Ovarian cancer [Unknown]

NARRATIVE: CASE EVENT DATE: 2005
